FAERS Safety Report 24683388 (Version 1)
Quarter: 2024Q4

REPORT INFORMATION
  Report Type: Spontaneous
  Country: CN (occurrence: CN)
  Receive Date: 20241201
  Receipt Date: 20241201
  Transmission Date: 20250115
  Serious: Yes (Other)
  Sender: BEIGENE
  Company Number: CN-BEIGENE-BGN-2024-019004

PATIENT

DRUGS (3)
  1. TISLELIZUMAB [Suspect]
     Active Substance: TISLELIZUMAB
     Indication: Malignant neoplasm of thymus
     Dosage: 0.2 GRAM
     Route: 041
     Dates: start: 20240725
  2. PEMETREXED [Suspect]
     Active Substance: PEMETREXED
     Indication: Malignant neoplasm of thymus
     Dosage: 0.2 GRAM
     Route: 041
     Dates: start: 20240725
  3. CARBOPLATIN [Suspect]
     Active Substance: CARBOPLATIN
     Indication: Malignant neoplasm of thymus
     Dosage: 0.6 GRAM
     Route: 041
     Dates: start: 20240725

REACTIONS (1)
  - Myelosuppression [Recovering/Resolving]

NARRATIVE: CASE EVENT DATE: 20240806
